FAERS Safety Report 7928322-8 (Version None)
Quarter: 2011Q4

REPORT INFORMATION
  Report Type: 
  Country: None (occurrence: None)
  Receive Date: 20111118
  Receipt Date: 20111112
  Transmission Date: 20120403
  Serious: Yes (Other)
  Sender: FDA-Public Use
  Company Number: US-TEVA-309048USA

PATIENT
  Sex: Female

DRUGS (2)
  1. PLAN B ONE-STEP [Suspect]
     Indication: POST COITAL CONTRACEPTION
     Dosage: 1.5 MILLIGRAM;
     Route: 048
     Dates: start: 20111105, end: 20111105
  2. ONE A DAY VITAMIN [Concomitant]
     Indication: MEDICAL DIET
     Route: 048

REACTIONS (4)
  - COITAL BLEEDING [None]
  - NAUSEA [None]
  - MENSTRUATION IRREGULAR [None]
  - HAEMATEMESIS [None]
